FAERS Safety Report 21244529 (Version 1)
Quarter: 2022Q3

REPORT INFORMATION
  Report Type: Spontaneous
  Country: US (occurrence: None)
  Receive Date: 20220822
  Receipt Date: 20220822
  Transmission Date: 20221027
  Serious: No
  Sender: FDA-Public Use
  Company Number: None

PATIENT
  Sex: Female

DRUGS (1)
  1. RINVOQ [Suspect]
     Active Substance: UPADACITINIB
     Indication: Rheumatoid arthritis
     Dosage: 15MG 1 PILL ONCE DAILY MOUTH?
     Route: 048
     Dates: start: 20200706

REACTIONS (12)
  - Arthralgia [None]
  - Pain [None]
  - COVID-19 [None]
  - Therapeutic product effect decreased [None]
  - Speech disorder [None]
  - Mobility decreased [None]
  - Memory impairment [None]
  - Gastrointestinal disorder [None]
  - Skin disorder [None]
  - Anxiety [None]
  - Depression [None]
  - Post-traumatic stress disorder [None]
